FAERS Safety Report 18564985 (Version 1)
Quarter: 2020Q4

REPORT INFORMATION
  Report Type: Spontaneous
  Country: IT (occurrence: IT)
  Receive Date: 20201201
  Receipt Date: 20201201
  Transmission Date: 20210114
  Serious: Yes (Other)
  Sender: FDA-Public Use
  Company Number: IT-PFIZER INC-2020470309

PATIENT
  Age: 35 Year
  Sex: Male

DRUGS (3)
  1. TAVOR (LORAZEPAM) [Suspect]
     Active Substance: LORAZEPAM
     Dosage: 10 MG TOTAL
     Route: 048
     Dates: start: 20190528, end: 20190528
  2. VALIUM [Suspect]
     Active Substance: DIAZEPAM
     Dosage: 150 DROP TOTAL
     Route: 048
     Dates: start: 20190528, end: 20190528
  3. TALOFEN [Suspect]
     Active Substance: PROMAZINE HYDROCHLORIDE
     Dosage: 40 DROP TOTAL
     Route: 048
     Dates: start: 20190528, end: 20190528

REACTIONS (2)
  - Loss of consciousness [Recovering/Resolving]
  - Drug abuse [Recovering/Resolving]

NARRATIVE: CASE EVENT DATE: 20190528
